FAERS Safety Report 6930315-4 (Version None)
Quarter: 2010Q3

REPORT INFORMATION
  Report Type: 
  Country: None (occurrence: None)
  Receive Date: 20100813
  Receipt Date: 20100729
  Transmission Date: 20110219
  Serious: Yes (Other)
  Sender: FDA-Public Use
  Company Number: 008883

PATIENT
  Sex: Female

DRUGS (9)
  1. CERTOLIZUMAB PEGOL (CERTOLIZUMAB PEGOL) [Suspect]
     Indication: RHEUMATOID ARTHRITIS
     Dosage: (C870-41 SUBCUTANEOUS), (400 MG 1X/4 WEEKS SUBCUTANEOUS)
     Route: 058
     Dates: start: 20090314, end: 20090912
  2. CERTOLIZUMAB PEGOL (CERTOLIZUMAB PEGOL) [Suspect]
     Indication: RHEUMATOID ARTHRITIS
     Dosage: (C870-41 SUBCUTANEOUS), (400 MG 1X/4 WEEKS SUBCUTANEOUS)
     Route: 058
     Dates: start: 20090926, end: 20100213
  3. METHOTREXATE [Concomitant]
  4. DICLOFENAC SODIUM [Concomitant]
  5. NATURES OWN THEARPEUTIC FORMULA [Concomitant]
  6. ISONIAZID [Concomitant]
  7. SACCHARATED IRON OXIDE [Concomitant]
  8. DEXTROSE [Concomitant]
  9. INDOMETHACIN SODIUM [Concomitant]

REACTIONS (3)
  - BREAST CANCER FEMALE [None]
  - JOINT DESTRUCTION [None]
  - JOINT DISLOCATION [None]
